FAERS Safety Report 24529024 (Version 1)
Quarter: 2024Q4

REPORT INFORMATION
  Report Type: Spontaneous
  Country: US (occurrence: None)
  Receive Date: 20241019
  Receipt Date: 20241019
  Transmission Date: 20250114
  Serious: Yes (Other)
  Sender: Public
  Company Number: None

PATIENT
  Age: 80 Year
  Sex: Female
  Weight: 67.5 kg

DRUGS (10)
  1. JARDIANCE [Suspect]
     Active Substance: EMPAGLIFLOZIN
     Indication: Blood glucose increased
     Dosage: OTHER QUANTITY : 1 CAPSULE(S);?FREQUENCY : DAILY;?
     Route: 048
  2. LISINOPRIL [Concomitant]
     Active Substance: LISINOPRIL
  3. METFORMIN [Concomitant]
     Active Substance: METFORMIN HYDROCHLORIDE
  4. ATENOLOL [Concomitant]
     Active Substance: ATENOLOL
  5. EZETIMIBE [Concomitant]
     Active Substance: EZETIMIBE
  6. PRAVASTATIN [Concomitant]
  7. COLESTIPOL [Concomitant]
  8. CALCIUM [Concomitant]
     Active Substance: CALCIUM
  9. VITAMINS [Concomitant]
     Active Substance: VITAMINS
  10. lo dose aspirin [Concomitant]

REACTIONS (9)
  - Dizziness [None]
  - Dizziness [None]
  - Hyperhidrosis [None]
  - Asthenia [None]
  - Constipation [None]
  - Confusional state [None]
  - Back pain [None]
  - Nausea [None]
  - Vomiting [None]

NARRATIVE: CASE EVENT DATE: 20240819
